FAERS Safety Report 4352780-1 (Version None)
Quarter: 2004Q2

REPORT INFORMATION
  Report Type: 
  Country: None (occurrence: None)
  Receive Date: 20040429
  Receipt Date: 20040421
  Transmission Date: 20050107
  Serious: Yes (Other)
  Sender: FDA-Public Use
  Company Number: 200303630

PATIENT
  Age: 74 Year
  Sex: Female

DRUGS (4)
  1. IMODIUM A-D [Suspect]
     Indication: DIARRHOEA
     Dosage: PO
     Route: 048
     Dates: start: 20040101, end: 20040420
  2. COUMADIN [Concomitant]
  3. SYNTHROID [Concomitant]
  4. IBUPROFEN [Concomitant]

REACTIONS (4)
  - DEHYDRATION [None]
  - DRUG INEFFECTIVE [None]
  - OVERDOSE [None]
  - VOMITING [None]
